FAERS Safety Report 12136081 (Version 1)
Quarter: 2016Q1

REPORT INFORMATION
  Report Type: Report from Study
  Country: IT (occurrence: IT)
  Receive Date: 20160302
  Receipt Date: 20160302
  Transmission Date: 20160526
  Serious: Yes (Life-Threatening, Hospitalization)
  Sender: FDA-Public Use
  Company Number: IT-ACCORD-038197

PATIENT
  Age: 52 Year
  Sex: Male
  Weight: 62 kg

DRUGS (5)
  1. CO-EFFERALGAN [Concomitant]
     Active Substance: ACETAMINOPHEN\CODEINE PHOSPHATE
     Dates: start: 20120422
  2. NO DRUG NAME [Concomitant]
     Dates: start: 201109
  3. SOLDESAM [Concomitant]
     Active Substance: DEXAMETHASONE
     Dates: start: 20120506
  4. PACLITAXEL/PACLITAXEL LIPOSOME [Suspect]
     Active Substance: PACLITAXEL
     Indication: GASTRIC CANCER
     Route: 042
     Dates: start: 20120427, end: 20120618
  5. PERIDON [Concomitant]
     Active Substance: DOMPERIDONE
     Dates: start: 20120419

REACTIONS (3)
  - Diarrhoea [Recovering/Resolving]
  - Off label use [Unknown]
  - Acute kidney injury [Recovering/Resolving]

NARRATIVE: CASE EVENT DATE: 20120530
